FAERS Safety Report 16824677 (Version 1)
Quarter: 2019Q3

REPORT INFORMATION
  Report Type: Spontaneous
  Country: US (occurrence: US)
  Receive Date: 20190918
  Receipt Date: 20190918
  Transmission Date: 20191005
  Serious: Yes (Other)
  Sender: FDA-Public Use
  Company Number: US-009507513-1909USA004972

PATIENT
  Age: 54 Year
  Sex: Male

DRUGS (3)
  1. PANTOPRAZOLE [Concomitant]
     Active Substance: PANTOPRAZOLE
     Indication: COCCIDIOIDOMYCOSIS
  2. FLUCONAZOLE. [Concomitant]
     Active Substance: FLUCONAZOLE
     Dosage: 600 MILLIGRAM, DAILY
  3. NOXAFIL [Suspect]
     Active Substance: POSACONAZOLE
     Indication: COCCIDIOIDOMYCOSIS
     Dosage: 300 MILLIGRAM, DAILY
     Route: 048

REACTIONS (4)
  - Hypokalaemia [Recovered/Resolved]
  - Acquired apparent mineralocorticoid excess [Unknown]
  - Hypertension [Recovered/Resolved]
  - Product use in unapproved indication [Unknown]
